FAERS Safety Report 12491588 (Version 1)
Quarter: 2016Q2

REPORT INFORMATION
  Report Type: Spontaneous
  Country: US (occurrence: US)
  Receive Date: 20160623
  Receipt Date: 20160623
  Transmission Date: 20160815
  Serious: No
  Sender: FDA-Public Use
  Company Number: US-PFIZER INC-2016290750

PATIENT
  Age: 64 Year
  Sex: Female
  Weight: 88 kg

DRUGS (11)
  1. CYTOMEL [Interacting]
     Active Substance: LIOTHYRONINE SODIUM
     Dosage: 5 UG, 7X/WEEK
  2. CYTOMEL [Interacting]
     Active Substance: LIOTHYRONINE SODIUM
     Dosage: 5 UG, 14X/WEEK
  3. CYTOMEL [Interacting]
     Active Substance: LIOTHYRONINE SODIUM
     Dosage: 5 UG, 10X/WEEK
  4. TIROSINT [Interacting]
     Active Substance: LEVOTHYROXINE SODIUM
     Dosage: 88 UG, 1X/DAY, IN THE MORNING
     Route: 048
  5. CYTOMEL [Interacting]
     Active Substance: LIOTHYRONINE SODIUM
     Dosage: 5 UG, 9X/WEEK
  6. TIROSINT [Interacting]
     Active Substance: LEVOTHYROXINE SODIUM
     Indication: THYROID DISORDER
     Dosage: 112 UG, 1X/DAY
     Route: 048
     Dates: start: 20150916
  7. CYTOMEL [Interacting]
     Active Substance: LIOTHYRONINE SODIUM
     Dosage: 5 UG, 4X/WEEK
  8. CYTOMEL [Interacting]
     Active Substance: LIOTHYRONINE SODIUM
     Dosage: 5 UG, 11X/WEEK
  9. CYTOMEL [Interacting]
     Active Substance: LIOTHYRONINE SODIUM
     Dosage: ONE AND A HALF TABLET 6 DAYS A WEEK AND ONE TABLET ON THE 7TH DAY
  10. LEVOTHYROXINE SODIUM. [Concomitant]
     Active Substance: LEVOTHYROXINE SODIUM
  11. CYTOMEL [Suspect]
     Active Substance: LIOTHYRONINE SODIUM
     Indication: THYROID DISORDER
     Dosage: 5 UG, 6X/WEEK
     Route: 048
     Dates: start: 20130802

REACTIONS (2)
  - Palpitations [Unknown]
  - Drug interaction [Unknown]
